FAERS Safety Report 25473052 (Version 2)
Quarter: 2025Q3

REPORT INFORMATION
  Report Type: Spontaneous
  Country: US (occurrence: US)
  Receive Date: 20250624
  Receipt Date: 20250710
  Transmission Date: 20251021
  Serious: Yes (Other)
  Sender: DELCATH SYSTEMS
  Company Number: US-DELCATH SYSTEMS-DELC-000019

PATIENT

DRUGS (1)
  1. HEPZATO [Suspect]
     Active Substance: MELPHALAN
     Indication: Metastases to liver
     Route: 013

REACTIONS (1)
  - Device malfunction [Unknown]

NARRATIVE: CASE EVENT DATE: 20250605
